FAERS Safety Report 24793492 (Version 1)
Quarter: 2024Q4

REPORT INFORMATION
  Report Type: Other
  Country: GB (occurrence: GB)
  Receive Date: 20241231
  Receipt Date: 20241231
  Transmission Date: 20250115
  Serious: Yes (Hospitalization, Other)
  Sender: EVEREST LIFE SCIENCES LLC
  Company Number: GB-Everest Life Sciences LLC-2168089

PATIENT
  Age: 36 Year
  Sex: Female

DRUGS (23)
  1. DAPSONE [Suspect]
     Active Substance: DAPSONE
     Indication: Product used for unknown indication
  2. COTRIMOXAZOLE [Suspect]
     Active Substance: SULFAMETHOXAZOLE\TRIMETHOPRIM
  3. AMPHOTERICIN B [Concomitant]
     Active Substance: AMPHOTERICIN B
  4. PROBENECID [Concomitant]
     Active Substance: PROBENECID
  5. CIDOFOVIR [Concomitant]
     Active Substance: CIDOFOVIR
  6. ETOPOSIDE [Concomitant]
     Active Substance: ETOPOSIDE
  7. Immunoglobulin [Concomitant]
  8. ANAKINRA [Concomitant]
     Active Substance: ANAKINRA
  9. FOSCARNET SODIUM [Concomitant]
     Active Substance: FOSCARNET SODIUM
  10. DOLUTEGRAVIR [Concomitant]
     Active Substance: DOLUTEGRAVIR
  11. EMTRICITABINE [Concomitant]
     Active Substance: EMTRICITABINE
  12. TENOFOVIR DISOPROXIL FUMARATE [Concomitant]
     Active Substance: TENOFOVIR DISOPROXIL FUMARATE
  13. AZITHROMYCIN ANHYDROUS [Concomitant]
     Active Substance: AZITHROMYCIN ANHYDROUS
  14. ETHAMBUTOL [Concomitant]
     Active Substance: ETHAMBUTOL HYDROCHLORIDE
  15. RIFAMPIN [Concomitant]
     Active Substance: RIFAMPIN
  16. DAPTOMYCIN [Concomitant]
     Active Substance: DAPTOMYCIN
  17. VANCOMYCIN HYDROCHLORIDE [Concomitant]
     Active Substance: VANCOMYCIN HYDROCHLORIDE
  18. MEROPENEM [Concomitant]
     Active Substance: MEROPENEM
  19. PIPERACILLIN AND TAZOBACTAM [Concomitant]
     Active Substance: PIPERACILLIN SODIUM\TAZOBACTAM SODIUM
  20. BIKTARVY [Concomitant]
     Active Substance: BICTEGRAVIR SODIUM\EMTRICITABINE\TENOFOVIR ALAFENAMIDE FUMARATE
  21. FLUCONAZOLE [Concomitant]
     Active Substance: FLUCONAZOLE
  22. DEXAMETHASONE [Concomitant]
     Active Substance: DEXAMETHASONE
  23. VALGANCICLOVIR [Suspect]
     Active Substance: VALGANCICLOVIR

REACTIONS (2)
  - Pancytopenia [Recovering/Resolving]
  - Methaemoglobinaemia [Unknown]
